FAERS Safety Report 5905389-X (Version None)
Quarter: 2008Q4

REPORT INFORMATION
  Report Type: 
  Country: None (occurrence: None)
  Receive Date: 20081001
  Receipt Date: 20080922
  Transmission Date: 20090506
  Serious: Yes (Other)
  Sender: FDA-Public Use
  Company Number: SE-PFIZER INC-2008080411

PATIENT
  Sex: Female

DRUGS (6)
  1. PREDNISOLONE [Suspect]
     Indication: AUTOIMMUNE DISORDER
     Dosage: DAILY DOSE:7.5MG
     Route: 048
     Dates: start: 20071027
  2. IMUREL [Concomitant]
     Dosage: DAILY DOSE:100MG
  3. EMCONCOR [Concomitant]
     Dosage: TEXT:5+2.5 MG
  4. SPIRONOLACTONE [Concomitant]
     Dosage: DAILY DOSE:25MG
  5. KALCIPOS-D [Concomitant]
     Dosage: TEXT:1 TABLET
  6. OMEPRAZOLE [Concomitant]
     Dosage: DAILY DOSE:20MG

REACTIONS (1)
  - DEEP VEIN THROMBOSIS [None]
